FAERS Safety Report 6522668-6 (Version None)
Quarter: 2009Q4

REPORT INFORMATION
  Report Type: 
  Country: None (occurrence: None)
  Receive Date: 20091230
  Receipt Date: 20091228
  Transmission Date: 20100525
  Serious: Yes (Hospitalization)
  Sender: FDA-Public Use
  Company Number: US-EISAI INC.-E2020-05798-SPO-US

PATIENT
  Age: 98 Year
  Sex: Female

DRUGS (4)
  1. ARICEPT [Suspect]
     Route: 048
     Dates: start: 20090801, end: 20090801
  2. ARICEPT [Suspect]
     Route: 048
     Dates: start: 20090801
  3. ZOLOFT [Concomitant]
  4. DEPAKOTE [Concomitant]

REACTIONS (8)
  - CHEST PAIN [None]
  - COGNITIVE DISORDER [None]
  - DECREASED APPETITE [None]
  - FALL [None]
  - HALLUCINATION [None]
  - HIP FRACTURE [None]
  - IRRITABILITY [None]
  - SUICIDE ATTEMPT [None]
